FAERS Safety Report 7236542-3 (Version None)
Quarter: 2011Q1

REPORT INFORMATION
  Report Type: 
  Country: None (occurrence: None)
  Receive Date: 20110112
  Receipt Date: 20101227
  Transmission Date: 20110831
  Serious: Yes (Life-Threatening, Hospitalization)
  Sender: FDA-Public Use
  Company Number: 2010BI035026

PATIENT
  Age: 57 Year
  Sex: Female
  Weight: 63 kg

DRUGS (17)
  1. FERROUS CITRATE [Concomitant]
  2. MAGNESIUM OXIDE [Concomitant]
  3. GASTER [Concomitant]
  4. FLUDEOXYGLUCOSE [Concomitant]
  5. GENINAX [Concomitant]
  6. MYSLEE [Concomitant]
  7. DOXORUBICIN HYDROCHLORIDE [Concomitant]
  8. ZEVALIN [Suspect]
     Indication: FOLLICLE CENTRE LYMPHOMA, FOLLICULAR GRADE I, II, III STAGE IV
     Dosage: 935 MBQ; 1X; IV
     Route: 042
     Dates: start: 20100309, end: 20100316
  9. GASLON N_OD [Concomitant]
  10. VINCRISTINE SULFATE [Concomitant]
  11. PREDNISOLONE [Concomitant]
  12. RITUXIMAB [Concomitant]
  13. RITUXIMAB [Concomitant]
  14. POLARAMINE [Concomitant]
  15. CYCLOPHOSPHAMIDE [Concomitant]
  16. LOXONIN [Concomitant]
  17. GARENOXACIN [Concomitant]

REACTIONS (7)
  - ENTEROCOLITIS [None]
  - PLATELET COUNT DECREASED [None]
  - HAEMOGLOBIN DECREASED [None]
  - WHITE BLOOD CELL COUNT DECREASED [None]
  - NEUTROPHIL COUNT DECREASED [None]
  - PYREXIA [None]
  - ILEUS [None]
